FAERS Safety Report 8837790 (Version 3)
Quarter: 2012Q4

REPORT INFORMATION
  Report Type: 
  Country: AU (occurrence: AU)
  Receive Date: 20121012
  Receipt Date: 20121120
  Transmission Date: 20130627
  Serious: Yes (Hospitalization)
  Sender: FDA-Public Use
  Company Number: AU-PFIZER INC-2012244367

PATIENT
  Age: 51 Year
  Sex: Male
  Weight: 72.5 kg

DRUGS (5)
  1. AXITINIB [Suspect]
     Indication: METASTATIC RENAL CELL CARCINOMA
     Dosage: 7 mg, 2x/day
     Route: 048
     Dates: start: 20120810, end: 20121005
  2. PERINDOPRIL [Concomitant]
     Indication: HYPERTENSION
     Dosage: 2.5 mg, 1x/day
     Route: 048
     Dates: start: 20120911
  3. NAPROXEN [Concomitant]
     Indication: BACK PAIN AGGRAVATED
     Dosage: 1000 mg, 1x/day
     Route: 048
     Dates: start: 20120910
  4. ENDONE [Concomitant]
     Indication: BACK PAIN
     Dosage: 5 mg, 3x/day
     Route: 048
     Dates: start: 20120825
  5. TARGIN [Concomitant]
     Indication: BACK PAIN
     Dosage: 5 mg / 10 mg, 2x/day
     Route: 048
     Dates: start: 20120825

REACTIONS (1)
  - Pleural effusion [Recovered/Resolved]
